FAERS Safety Report 6749341-3 (Version None)
Quarter: 2010Q2

REPORT INFORMATION
  Report Type: 
  Country: None (occurrence: None)
  Receive Date: 20100601
  Receipt Date: 20100525
  Transmission Date: 20101027
  Serious: Yes (Other)
  Sender: FDA-Public Use
  Company Number: BR-ROCHE-654405

PATIENT
  Sex: Female

DRUGS (2)
  1. ROACUTAN [Suspect]
     Indication: DRUG USE FOR UNKNOWN INDICATION
     Route: 065
     Dates: end: 20090101
  2. DICLIN [Concomitant]
     Indication: CONTRACEPTION

REACTIONS (1)
  - ABORTION SPONTANEOUS [None]
